FAERS Safety Report 15082252 (Version 1)
Quarter: 2018Q2

REPORT INFORMATION
  Report Type: Report from Study
  Country: NL (occurrence: NL)
  Receive Date: 20180628
  Receipt Date: 20180628
  Transmission Date: 20180711
  Serious: Yes (Other)
  Sender: FDA-Public Use
  Company Number: NL-AUROBINDO-AUR-APL-2016-11436

PATIENT
  Age: 73 Year
  Sex: Female

DRUGS (3)
  1. PRAVASTATIN 10MG [Suspect]
     Active Substance: PRAVASTATIN
     Dosage: 20 MILLIGRAM, ONCE A DAY (1 DF=10-20 MG)
     Route: 065
  2. PRAVASTATIN 10MG [Suspect]
     Active Substance: PRAVASTATIN
     Indication: HYPERTENSION
     Dosage: 10 MG, ONCE A DAY
     Route: 065
  3. EZETIMIBE. [Suspect]
     Active Substance: EZETIMIBE
     Indication: PRODUCT USED FOR UNKNOWN INDICATION
     Dosage: 10 MG, ONCE A DAY
     Route: 065

REACTIONS (3)
  - Myalgia [Unknown]
  - Muscle rupture [Unknown]
  - Ligament rupture [Unknown]
